FAERS Safety Report 7484394-9 (Version None)
Quarter: 2011Q2

REPORT INFORMATION
  Report Type: 
  Country: None (occurrence: None)
  Receive Date: 20110517
  Receipt Date: 20100609
  Transmission Date: 20111010
  Serious: Yes (Other)
  Sender: FDA-Public Use
  Company Number: US-BAYER-200938945NA

PATIENT
  Age: 31 Year
  Sex: Female
  Weight: 52.273 kg

DRUGS (13)
  1. YASMIN [Suspect]
     Dosage: UNK
     Dates: start: 20050919
  2. YASMIN [Suspect]
     Dosage: UNK
     Dates: start: 20051123, end: 20060112
  3. YASMIN [Suspect]
     Dosage: UNK
     Dates: start: 20080330, end: 20080412
  4. WELLBUTRIN XL [Concomitant]
     Dates: start: 20030101
  5. ASPIRIN [Concomitant]
  6. SIMVASTATIN [Concomitant]
     Dates: start: 20030101
  7. ZOCOR [Concomitant]
  8. YASMIN [Suspect]
     Dosage: UNK
     Route: 048
     Dates: start: 20050108, end: 20050715
  9. YASMIN [Suspect]
     Dosage: UNK
     Dates: start: 20080327
  10. ADVAIR DISKUS 100/50 [Concomitant]
  11. YASMIN [Suspect]
     Indication: PREMENSTRUAL SYNDROME
     Dosage: UNK
     Route: 048
     Dates: start: 20040606, end: 20041217
  12. THYROID TAB [Concomitant]
     Dates: start: 20030101
  13. TOPAMAX [Concomitant]
     Dates: start: 20030101

REACTIONS (3)
  - THROMBOPHLEBITIS SUPERFICIAL [None]
  - PAIN [None]
  - MENTAL DISORDER [None]
